FAERS Safety Report 4916508-6 (Version None)
Quarter: 2006Q1

REPORT INFORMATION
  Report Type: 
  Country: None (occurrence: None)
  Receive Date: 20060220
  Receipt Date: 20060208
  Transmission Date: 20060701
  Serious: Yes (Disabling)
  Sender: FDA-Public Use
  Company Number: PHRM2006FR00744

PATIENT
  Age: 51 Year
  Sex: Female
  Weight: 80 kg

DRUGS (21)
  1. NAVELBINE [Suspect]
     Indication: BREAST CANCER METASTATIC
     Dosage: 90 MG ONCE DAY 1 AND ONCE DAY 8
     Route: 048
     Dates: start: 20050630, end: 20051110
  2. NAVELBINE [Suspect]
     Dosage: 25 MG/M2 ONCE DAY 1 AND ONCE DAY 8
     Dates: start: 20050318
  3. XELODA [Suspect]
     Indication: BREAST CANCER METASTATIC
     Dosage: 1.5 G, BID FROM DAY 1 TO DAY 14
     Route: 048
     Dates: start: 20050318
  4. XELODA [Suspect]
     Dosage: 2 G FROM DAY 1 TO DAY 14
     Route: 048
     Dates: start: 20050630, end: 20051110
  5. HORMONES [Concomitant]
     Indication: BREAST CANCER METASTATIC
     Dates: start: 20030301, end: 20040401
  6. TAXOTERE [Concomitant]
     Indication: BREAST CANCER METASTATIC
     Dates: start: 20040501
  7. ARIMIDEX [Concomitant]
     Indication: BREAST CANCER METASTATIC
  8. SKENAN [Concomitant]
     Route: 048
  9. PROZAC [Concomitant]
     Route: 048
  10. LANZOR [Concomitant]
     Route: 048
  11. HEPT-A-MYL [Concomitant]
     Route: 048
  12. PRAXINOR [Concomitant]
     Route: 048
  13. ZOLPIDEM [Concomitant]
  14. CLONAZEPAM [Concomitant]
     Route: 048
  15. FORLAX [Concomitant]
     Route: 048
  16. DITROPAN                                /SCH/ [Concomitant]
  17. SOLUPRED [Concomitant]
  18. XYLOCAINE [Concomitant]
  19. HEXAQUINE [Concomitant]
  20. PREVISCAN [Concomitant]
     Dates: end: 20061110
  21. ZOMETA [Suspect]
     Indication: METASTASES TO BONE
     Dosage: 4 MG, QMO
     Route: 042
     Dates: start: 20020806, end: 20060110

REACTIONS (12)
  - APHTHOUS STOMATITIS [None]
  - ATROPHY OF TONGUE PAPILLAE [None]
  - BONE DEBRIDEMENT [None]
  - BONE EROSION [None]
  - BUCCAL MUCOSAL ROUGHENING [None]
  - DRY MOUTH [None]
  - GINGIVAL BLEEDING [None]
  - MUCOSAL INFLAMMATION [None]
  - OSTEONECROSIS [None]
  - SINUSITIS [None]
  - SUTURE INSERTION [None]
  - TOOTH EXTRACTION [None]
